FAERS Safety Report 7397222-7 (Version None)
Quarter: 2011Q2

REPORT INFORMATION
  Report Type: 
  Country: None (occurrence: None)
  Receive Date: 20110406
  Receipt Date: 20110324
  Transmission Date: 20111010
  Serious: Yes (Other)
  Sender: FDA-Public Use
  Company Number: US-ACTELION-A-US2011-46521

PATIENT

DRUGS (3)
  1. COUMADIN [Concomitant]
  2. VELETRI [Suspect]
     Indication: PULMONARY ARTERIAL HYPERTENSION
     Dosage: 21 NG/KG, PER MIN
     Route: 042
     Dates: start: 20101217, end: 20110318
  3. SILDENAFIL [Concomitant]

REACTIONS (8)
  - FATIGUE [None]
  - RASH [None]
  - DYSPNOEA [None]
  - CHEST DISCOMFORT [None]
  - ASTHENIA [None]
  - DISEASE PROGRESSION [None]
  - PALPITATIONS [None]
  - PULMONARY HYPERTENSION [None]
